FAERS Safety Report 8293481-7 (Version None)
Quarter: 2012Q2

REPORT INFORMATION
  Report Type: 
  Country: None (occurrence: None)
  Receive Date: 20120417
  Receipt Date: 20120404
  Transmission Date: 20120825
  Serious: Yes (Hospitalization)
  Sender: FDA-Public Use
  Company Number: CA-MYLANLABS-2012S1007546

PATIENT
  Age: 52 Year
  Sex: Male

DRUGS (9)
  1. HYDROMORPHONE HCL [Suspect]
     Dosage: REFILLED WITH 40ML FRESH HYDROMORPHONE (50 MG/ML); THEN ADMINISTERED PRIMING BOLUS
     Route: 037
  2. HYDROMORPHONE HCL [Suspect]
     Dosage: PRIMING BOLUS
     Route: 037
  3. HYDROMORPHONE HCL [Suspect]
     Indication: PAIN
     Dosage: INCREASED TO 12 MG/DAY (50 MG/ML SOLUTION) OVER 14MO [PREVIOUS DOSAGE NOT STATED]; THEN REFILLED
     Route: 037
  4. HYDROMORPHONE HCL [Suspect]
     Dosage: 12MG OVER 30MIN
     Route: 042
  5. HYDROMORPHONE HCL [Suspect]
     Indication: HYPERAESTHESIA
     Dosage: INCREASED TO 12 MG/DAY (50 MG/ML SOLUTION) OVER 14MO [PREVIOUS DOSAGE NOT STATED]; THEN REFILLED
     Route: 037
  6. HYDROMORPHONE HCL [Suspect]
     Dosage: REFILLED WITH 40ML FRESH HYDROMORPHONE (50 MG/ML); THEN ADMINISTERED PRIMING BOLUS
     Route: 037
  7. HYDROMORPHONE HCL [Suspect]
     Dosage: 12MG OVER 30MIN
     Route: 042
  8. MORPHINE [Suspect]
     Indication: HYPERAESTHESIA
     Dosage: 10MG OVER 30MIN
     Route: 042
  9. HYDROMORPHONE HCL [Suspect]
     Dosage: PRIMING BOLUS
     Route: 037

REACTIONS (7)
  - HYPERAESTHESIA [None]
  - TOXICITY TO VARIOUS AGENTS [None]
  - MYOCLONUS [None]
  - DRUG TOLERANCE [None]
  - HYPERHIDROSIS [None]
  - MUSCLE SPASMS [None]
  - DRUG WITHDRAWAL SYNDROME [None]
